FAERS Safety Report 25077816 (Version 1)
Quarter: 2025Q1

REPORT INFORMATION
  Report Type: Spontaneous
  Country: US (occurrence: US)
  Receive Date: 20250314
  Receipt Date: 20250314
  Transmission Date: 20250409
  Serious: Yes (Other)
  Sender: BAUSCH AND LOMB
  Company Number: US-BAUSCHBL-2025BNL001709

PATIENT
  Age: 58 Year
  Sex: Female

DRUGS (1)
  1. MIEBO [Suspect]
     Active Substance: PERFLUOROHEXYLOCTANE
     Indication: Product used for unknown indication
     Dosage: 1 GTT OU QID
     Route: 047

REACTIONS (11)
  - Cataract operation [Unknown]
  - Product container issue [Unknown]
  - Product leakage [Unknown]
  - Product use issue [Unknown]
  - Product container seal issue [Unknown]
  - Poor quality product administered [Unknown]
  - Patient dissatisfaction with treatment [Unknown]
  - Product complaint [Unknown]
  - Wrong technique in product usage process [Unknown]
  - Circumstance or information capable of leading to medication error [Unknown]
  - Product knowledge deficit [Unknown]
